FAERS Safety Report 5339065-1 (Version None)
Quarter: 2007Q2

REPORT INFORMATION
  Report Type: 
  Country: None (occurrence: None)
  Receive Date: 20070330
  Receipt Date: 20070119
  Transmission Date: 20071010
  Serious: No
  Sender: FDA-Public Use
  Company Number: 2007UW01143

PATIENT

DRUGS (2)
  1. ZESTRIL [Suspect]
     Dosage: 20 MG PO
     Route: 048
  2. ZESTRIL [Suspect]
     Dosage: 40 MG PO
     Route: 048

REACTIONS (1)
  - SMALL BOWEL ANGIOEDEMA [None]
